FAERS Safety Report 11739829 (Version 2)
Quarter: 2015Q4

REPORT INFORMATION
  Report Type: Spontaneous
  Country: US (occurrence: US)
  Receive Date: 20151110
  Receipt Date: 20151120
  Transmission Date: 20160304
  Serious: No
  Sender: FDA-Public Use
  Company Number: US-ELI_LILLY_AND_COMPANY-US201209002138

PATIENT
  Age: 51 Year
  Sex: Female

DRUGS (3)
  1. FORTEO [Suspect]
     Active Substance: TERIPARATIDE
     Dosage: 20 UG, QD
  2. FORTEO [Suspect]
     Active Substance: TERIPARATIDE
     Dosage: 20 UG, QD
  3. FORTEO [Suspect]
     Active Substance: TERIPARATIDE
     Indication: OSTEOPOROSIS
     Dosage: 20 UG, QD
     Dates: start: 20120828

REACTIONS (10)
  - Neuralgia [Unknown]
  - Irritability [Unknown]
  - Nervousness [Unknown]
  - Oropharyngeal pain [Unknown]
  - Influenza [Unknown]
  - Fatigue [Unknown]
  - Hypersensitivity [Unknown]
  - Malaise [Unknown]
  - Formication [Unknown]
  - Incorrect product storage [Unknown]

NARRATIVE: CASE EVENT DATE: 20121027
